FAERS Safety Report 7557850-2 (Version None)
Quarter: 2011Q2

REPORT INFORMATION
  Report Type: 
  Country: None (occurrence: None)
  Receive Date: 20110620
  Receipt Date: 20110608
  Transmission Date: 20111010
  Serious: Yes (Other)
  Sender: FDA-Public Use
  Company Number: GB-ALLERGAN-1015565US

PATIENT
  Age: 16 Year
  Sex: Female

DRUGS (3)
  1. BRIMONIDINE TARTRATE [Concomitant]
     Indication: OCULAR HYPERTENSION
     Route: 047
  2. COSOPT [Concomitant]
     Indication: OCULAR HYPERTENSION
     Route: 047
  3. LUMIGAN [Suspect]
     Indication: OCULAR HYPERTENSION
     Route: 047

REACTIONS (2)
  - VISION BLURRED [None]
  - RETINAL DETACHMENT [None]
